FAERS Safety Report 20782078 (Version 2)
Quarter: 2022Q2

REPORT INFORMATION
  Report Type: Report from Study
  Country: US (occurrence: US)
  Receive Date: 20220504
  Receipt Date: 20220518
  Transmission Date: 20220721
  Serious: Yes (Other)
  Sender: FDA-Public Use
  Company Number: US-BRISTOL-MYERS SQUIBB COMPANY-2022-026216

PATIENT
  Age: 43 Year
  Sex: Female
  Weight: 89.8 kg

DRUGS (2)
  1. ZEPOSIA [Suspect]
     Active Substance: OZANIMOD HYDROCHLORIDE
     Indication: Colitis ulcerative
     Route: 048
     Dates: start: 20220405
  2. ZEPOSIA [Suspect]
     Active Substance: OZANIMOD HYDROCHLORIDE
     Dosage: DOSE: 0.23-0.46 MG
     Route: 048
     Dates: start: 20220405

REACTIONS (8)
  - Fatigue [Unknown]
  - Haemorrhage [Unknown]
  - Discomfort [Unknown]
  - Pain [Unknown]
  - Flatulence [Unknown]
  - Quality of life decreased [Unknown]
  - Nasopharyngitis [Unknown]
  - Headache [Unknown]

NARRATIVE: CASE EVENT DATE: 20220405
